APPROVED DRUG PRODUCT: XYLOCAINE 4% PRESERVATIVE FREE
Active Ingredient: LIDOCAINE HYDROCHLORIDE
Strength: 4%
Dosage Form/Route: INJECTABLE;INJECTION
Application: N010417 | Product #001
Applicant: FRESENIUS KABI USA LLC
Approved: Approved Prior to Jan 1, 1982 | RLD: Yes | RS: No | Type: DISCN